FAERS Safety Report 16792686 (Version 1)
Quarter: 2019Q3

REPORT INFORMATION
  Report Type: Report from Study
  Country: IL (occurrence: IL)
  Receive Date: 20190910
  Receipt Date: 20190910
  Transmission Date: 20191005
  Serious: No
  Sender: FDA-Public Use
  Company Number: IL-BEH-2019106697

PATIENT
  Age: 79 Year
  Sex: Female

DRUGS (1)
  1. ONE DOUBLE-ENDED NEEDLE FOR RECONSTITUTION/ADMINISTRATION SET(IVIG LYOPHILIZED) [Suspect]
     Active Substance: HUMAN IMMUNOGLOBULIN G
     Indication: IMMUNE THROMBOCYTOPENIC PURPURA
     Route: 042

REACTIONS (1)
  - Pruritus [Recovered/Resolved]

NARRATIVE: CASE EVENT DATE: 2002
